FAERS Safety Report 5206743-4 (Version None)
Quarter: 2007Q1

REPORT INFORMATION
  Report Type: 
  Country: None (occurrence: None)
  Receive Date: 20070108
  Receipt Date: 20061227
  Transmission Date: 20070707
  Serious: Yes (Other)
  Sender: FDA-Public Use
  Company Number: HQWYE094102JAN07

PATIENT
  Age: 21 Year
  Sex: Male

DRUGS (1)
  1. INDERAL [Suspect]
     Dosage: 40 MG (FREQUENCY UNSPECIFIED), ORAL
     Route: 048

REACTIONS (2)
  - INTENTIONAL OVERDOSE [None]
  - VOMITING [None]
